FAERS Safety Report 8803964 (Version 1)
Quarter: 2012Q4

REPORT INFORMATION
  Report Type: 
  Country: US (occurrence: US)
  Receive Date: 20120924
  Receipt Date: 20120924
  Transmission Date: 20130627
  Serious: No
  Sender: FDA-Public Use
  Company Number: US-PFIZER INC-2012235051

PATIENT
  Age: 63 Year
  Sex: Female
  Weight: 85.26 kg

DRUGS (9)
  1. CHANTIX [Suspect]
     Indication: SMOKING CESSATION THERAPY
     Dosage: 0.5 mg, 1x/day
     Route: 048
     Dates: start: 20120508, end: 201207
  2. ENALAPRIL [Concomitant]
     Indication: HYPERTENSION
     Dosage: UNK
  3. ZOCOR [Concomitant]
     Indication: BLOOD CHOLESTEROL INCREASED
     Dosage: UNK
  4. BUSPAR [Concomitant]
     Dosage: UNK
  5. CITALOPRAM [Concomitant]
     Dosage: UNK
  6. ALPRAZOLAM [Concomitant]
     Dosage: UNK
  7. ZALEPLON [Concomitant]
     Dosage: UNK
  8. TRILIPIX [Concomitant]
     Dosage: UNK
  9. ADVIL [Concomitant]
     Indication: PAIN
     Dosage: UNK

REACTIONS (1)
  - Drug ineffective [Unknown]
